FAERS Safety Report 8956725 (Version 1)
Quarter: 2012Q4

REPORT INFORMATION
  Report Type: Spontaneous
  Country: US (occurrence: None)
  Receive Date: 20121130
  Receipt Date: 20121130
  Transmission Date: 20130627
  Serious: Yes (Hospitalization, Disabling)
  Sender: FDA-Public Use
  Company Number: 1506501

PATIENT
  Age: 9 Year
  Sex: Female

DRUGS (9)
  1. FENTANYL CITRATE [Suspect]
     Indication: PAIN
     Dosage: 30 mcg/hr
  2. HYDROMORPHONE HYDROCHLORIDE [Suspect]
     Indication: PAIN WORSENED
     Dosage: 0.2 mg/hr
     Route: 042
  3. HYDROMORPHONE HYDROCHLORIDE [Suspect]
     Indication: PAIN WORSENED
  4. HYDROMORPHONE HYDROCHLORIDE [Suspect]
     Indication: BREAKTHROUGH PAIN
     Dosage: 0.2 mg every 2 hours
     Route: 040
  5. MORPHINE SULPHATE [Suspect]
     Indication: PAIN IN HIP
     Route: 042
  6. METHOTREXATE [Concomitant]
  7. ETANERCEPT [Concomitant]
  8. LORAZEPAM [Concomitant]
  9. KETOROLAC [Concomitant]

REACTIONS (6)
  - Hyperaesthesia [None]
  - Inadequate analgesia [None]
  - Pain [None]
  - Irritability [None]
  - Tachycardia [None]
  - Weight bearing difficulty [None]
